FAERS Safety Report 20590054 (Version 2)
Quarter: 2022Q2

REPORT INFORMATION
  Report Type: Spontaneous
  Country: CA (occurrence: CA)
  Receive Date: 20220314
  Receipt Date: 20220620
  Transmission Date: 20220721
  Serious: Yes (Hospitalization, Other)
  Sender: FDA-Public Use
  Company Number: CA-SA-2022SA075366

PATIENT

DRUGS (5)
  1. RANITIDINE [Suspect]
     Active Substance: RANITIDINE
     Indication: Product used for unknown indication
     Dosage: UNK
     Route: 064
  2. MESALAMINE [Suspect]
     Active Substance: MESALAMINE
     Indication: Product used for unknown indication
     Dosage: UNK
     Route: 064
  3. ESOMEPRAZOLE [Suspect]
     Active Substance: ESOMEPRAZOLE
     Indication: Product used for unknown indication
     Dosage: UNK
     Route: 064
  4. AZATHIOPRINE [Suspect]
     Active Substance: AZATHIOPRINE
     Indication: Product used for unknown indication
     Dosage: UNK
     Route: 064
  5. FIBRINOGEN [Suspect]
     Active Substance: FIBRINOGEN HUMAN
     Indication: Drug therapy
     Dosage: MATERNAL DOSE WAS 12G(170MG/KG, WEIGHT OF 71 KG);MATERNAL INDICATION: CONGENTIAL DYSFIBRINOGEN
     Route: 064

REACTIONS (4)
  - Foetal anaemia [Recovering/Resolving]
  - Foetal growth restriction [Recovered/Resolved]
  - Haemorrhage foetal [Recovering/Resolving]
  - Foetal exposure during pregnancy [Unknown]
